FAERS Safety Report 24589889 (Version 2)
Quarter: 2025Q1

REPORT INFORMATION
  Report Type: Spontaneous
  Country: DZ (occurrence: DZ)
  Receive Date: 20241107
  Receipt Date: 20250206
  Transmission Date: 20250409
  Serious: Yes (Life-Threatening, Other)
  Sender: BRISTOL-MYERS SQUIBB COMPANY
  Company Number: DZ-BRISTOL-MYERS SQUIBB COMPANY-2024-173892

PATIENT
  Age: 42 Year
  Sex: Female

DRUGS (1)
  1. OPDIVO [Suspect]
     Active Substance: NIVOLUMAB
     Indication: Hodgkin^s disease
     Dosage: TWICE PER MONTH?2X 100 MG 1X 40 MG
     Route: 042
     Dates: start: 20240708, end: 20241007

REACTIONS (1)
  - Cardiac failure [Unknown]
